FAERS Safety Report 21113417 (Version 1)
Quarter: 2022Q3

REPORT INFORMATION
  Report Type: Spontaneous
  Country: US (occurrence: US)
  Receive Date: 20220721
  Receipt Date: 20220721
  Transmission Date: 20221027
  Serious: No
  Sender: FDA-Public Use
  Company Number: US-FreseniusKabi-FK202209944

PATIENT
  Sex: Female

DRUGS (1)
  1. ENULOSE [Suspect]
     Active Substance: LACTULOSE
     Indication: Product used for unknown indication
     Dosage: ENULOSE LACTULOSE SOLUTION 10 G/15 ML

REACTIONS (1)
  - Drug ineffective [Unknown]
